FAERS Safety Report 17511989 (Version 2)
Quarter: 2020Q2

REPORT INFORMATION
  Report Type: Spontaneous
  Country: US (occurrence: US)
  Receive Date: 20200307
  Receipt Date: 20200526
  Transmission Date: 20200713
  Serious: Yes (Death, Life-Threatening)
  Sender: FDA-Public Use
  Company Number: US-TEVA-2020-US-1194844

PATIENT
  Age: 80 Year
  Sex: Male

DRUGS (6)
  1. OXALIPLATIN INJECTION, USP [Suspect]
     Active Substance: OXALIPLATIN
     Dosage: OXALIPLATIN MEITHEAL
     Route: 065
  2. OXALIPLATIN INGENUS [Suspect]
     Active Substance: OXALIPLATIN
     Route: 065
  3. MYLAN^S LEUCOVORIN [Suspect]
     Active Substance: LEUCOVORIN CALCIUM
     Route: 065
  4. OXALIPLATIN. [Suspect]
     Active Substance: OXALIPLATIN
     Route: 065
  5. OXALIPLATIN INGENUS [Suspect]
     Active Substance: OXALIPLATIN
     Route: 065
  6. LEUCOVORIN CALCIUM MYLAN [Suspect]
     Active Substance: LEUCOVORIN CALCIUM
     Dosage: MYLAN^S LEUCOVORIN
     Route: 065

REACTIONS (11)
  - Tachycardia [Fatal]
  - Dizziness [Unknown]
  - Cardiac arrest [Fatal]
  - Pallor [Unknown]
  - Slow response to stimuli [Unknown]
  - Oxygen saturation decreased [Unknown]
  - Hyperventilation [Fatal]
  - Blood pressure immeasurable [Unknown]
  - Dyspnoea [Fatal]
  - Hyperhidrosis [Unknown]
  - Retching [Unknown]

NARRATIVE: CASE EVENT DATE: 20200217
